FAERS Safety Report 9615379 (Version 1)
Quarter: 2013Q4

REPORT INFORMATION
  Report Type: Spontaneous
  Country: US (occurrence: None)
  Receive Date: 20131010
  Receipt Date: 20131010
  Transmission Date: 20140711
  Serious: Yes (Other)
  Sender: FDA-Public Use
  Company Number: None

PATIENT
  Age: 30 Year
  Sex: Female
  Weight: 84.37 kg

DRUGS (1)
  1. LUPRON [Suspect]
     Indication: ENDOMETRIOSIS
     Dosage: 3.75 MG Q/MO, IM
     Route: 030
     Dates: start: 20130807

REACTIONS (4)
  - Rash generalised [None]
  - Rash erythematous [None]
  - Pain [None]
  - Pruritus [None]
